FAERS Safety Report 18490952 (Version 1)
Quarter: 2020Q4

REPORT INFORMATION
  Report Type: Spontaneous
  Country: US (occurrence: US)
  Receive Date: 20201111
  Receipt Date: 20201111
  Transmission Date: 20210114
  Serious: No
  Sender: FDA-Public Use
  Company Number: None

PATIENT
  Sex: Male

DRUGS (1)
  1. ENTECAVIR, 0.5 MG [Suspect]
     Active Substance: ENTECAVIR
     Indication: TYPE 2 DIABETES MELLITUS
     Route: 048
     Dates: start: 20200219

REACTIONS (1)
  - Hospitalisation [None]
